FAERS Safety Report 9347688 (Version 1)
Quarter: 2013Q2

REPORT INFORMATION
  Report Type: Spontaneous
  Country: US (occurrence: US)
  Receive Date: 20130614
  Receipt Date: 20130614
  Transmission Date: 20140414
  Serious: Yes (Other)
  Sender: FDA-Public Use
  Company Number: US-ROCHE-1232500

PATIENT
  Age: 39 Year
  Sex: Male

DRUGS (1)
  1. VEMURAFENIB [Suspect]
     Indication: METASTATIC MALIGNANT MELANOMA
     Route: 065
     Dates: start: 20111230

REACTIONS (7)
  - Melanocytic naevus [Unknown]
  - Papule [Unknown]
  - Keratosis pilaris [Unknown]
  - Macule [Unknown]
  - Pruritus [Recovering/Resolving]
  - Arthralgia [Recovering/Resolving]
  - Xerosis [Recovering/Resolving]
